FAERS Safety Report 19003693 (Version 1)
Quarter: 2021Q1

REPORT INFORMATION
  Report Type: Spontaneous
  Country: DE (occurrence: DE)
  Receive Date: 20210312
  Receipt Date: 20210312
  Transmission Date: 20210420
  Serious: Yes (Death, Life-Threatening, Hospitalization)
  Sender: FDA-Public Use
  Company Number: DE-TEVA-2021-DE-1888015

PATIENT
  Age: 72 Year
  Sex: Female
  Weight: 130 kg

DRUGS (5)
  1. LIPROLOG MIX50/50 100EINHEITEN/ML FUR PEN PATRONE 3ML [Concomitant]
     Dosage: 1 IE, 24?0?14?0
     Route: 058
  2. TORASEMID [Suspect]
     Active Substance: TORSEMIDE
     Dosage: 20 MILLIGRAM DAILY; 1?0?0?0,
     Route: 048
  3. DICLOFENAC [Suspect]
     Active Substance: DICLOFENAC
     Dosage: 75 MILLIGRAM DAILY;  1?0?0?0,
     Route: 048
  4. CAPTOPRIL/HYDROCHLOROTHIAZIDE [Suspect]
     Active Substance: CAPTOPRIL\HYDROCHLOROTHIAZIDE
     Dosage: 2 DOSAGE FORMS DAILY; 50|25 MG, 0?1?1?0,
     Route: 048
  5. INSULIN LISPRO [Concomitant]
     Active Substance: INSULIN LISPRO
     Dosage: 5 DOSAGE FORMS DAILY; 1 IU, 0?0?0?5
     Route: 058

REACTIONS (4)
  - Nausea [Unknown]
  - Fall [Unknown]
  - Abdominal pain [Unknown]
  - General physical health deterioration [Unknown]
